FAERS Safety Report 13468839 (Version 1)
Quarter: 2017Q2

REPORT INFORMATION
  Report Type: Spontaneous
  Country: JP (occurrence: JP)
  Receive Date: 20170421
  Receipt Date: 20170421
  Transmission Date: 20170830
  Serious: Yes (Death)
  Sender: FDA-Public Use
  Company Number: JP-DSJP-DSJ-2017-109168

PATIENT

DRUGS (5)
  1. SELARA [Concomitant]
     Active Substance: EPLERENONE
     Dosage: 25 MG, QD
     Route: 065
  2. LIXIANA TABLETS 30MG [Suspect]
     Active Substance: EDOXABAN TOSYLATE
     Indication: ATRIAL FIBRILLATION
     Dosage: 30 MG, QD
     Route: 048
     Dates: start: 201612, end: 20170318
  3. SAMSCA [Concomitant]
     Active Substance: TOLVAPTAN
     Dosage: 3.75 UNK, UNK
     Route: 065
  4. DIART [Concomitant]
     Active Substance: AZOSEMIDE
     Dosage: 90 MG, QD
     Route: 065
  5. POTASSIUM GLUCONATE [Concomitant]
     Active Substance: POTASSIUM GLUCONATE
     Dosage: UNK
     Route: 048

REACTIONS (3)
  - Death [Fatal]
  - Gastrointestinal haemorrhage [Recovered/Resolved]
  - Nail bed bleeding [Recovered/Resolved]

NARRATIVE: CASE EVENT DATE: 20170314
